FAERS Safety Report 4684734-X (Version None)
Quarter: 2005Q2

REPORT INFORMATION
  Report Type: 
  Country: None (occurrence: None)
  Receive Date: 20050531
  Receipt Date: 20050125
  Transmission Date: 20051028
  Serious: Yes (Other)
  Sender: FDA-Public Use
  Company Number: USA050189201

PATIENT
  Age: 51 Year
  Sex: Male
  Weight: 114 kg

DRUGS (3)
  1. ZYPREXA [Suspect]
     Indication: BIPOLAR DISORDER
     Dosage: 5 MG/1 AT BEDTIME
     Dates: start: 19950101
  2. DEPAKOTE - SLOW RELEASE (VALPROATE SEMISODIUM) [Concomitant]
  3. ESKALTH (LITHIUM CARBONATE) [Concomitant]

REACTIONS (3)
  - BLOOD CHOLESTEROL INCREASED [None]
  - BLOOD GLUCOSE INCREASED [None]
  - HEPATIC ENZYME INCREASED [None]
